FAERS Safety Report 6004455-0 (Version None)
Quarter: 2008Q4

REPORT INFORMATION
  Report Type: 
  Country: None (occurrence: None)
  Receive Date: 20081216
  Receipt Date: 20081205
  Transmission Date: 20090506
  Serious: Yes (Hospitalization)
  Sender: FDA-Public Use
  Company Number: FI-MERCK-0812FIN00002

PATIENT
  Age: 63 Year
  Sex: Male

DRUGS (5)
  1. JANUVIA [Suspect]
     Route: 048
     Dates: start: 20081101, end: 20081130
  2. RAMIPRIL [Concomitant]
     Route: 048
  3. ASPIRIN [Concomitant]
     Route: 048
  4. METFORMIN HYDROCHLORIDE AND ROSIGLITAZONE MALEATE [Concomitant]
     Indication: DIABETES MELLITUS
     Route: 048
     Dates: end: 20081101
  5. METFORMIN HYDROCHLORIDE [Concomitant]
     Indication: DIABETES MELLITUS
     Route: 048

REACTIONS (2)
  - HEPATITIS ACUTE [None]
  - MALAISE [None]
